FAERS Safety Report 4775873-3 (Version None)
Quarter: 2005Q3

REPORT INFORMATION
  Report Type: 
  Country: None (occurrence: None)
  Receive Date: 20050914
  Receipt Date: 20050328
  Transmission Date: 20060218
  Serious: Yes (Hospitalization)
  Sender: FDA-Public Use
  Company Number: 163-20785-05030722 (0)

PATIENT
  Age: 28 Year
  Sex: Female
  Weight: 36.2878 kg

DRUGS (1)
  1. THALOMID [Suspect]
     Indication: HIV WASTING SYNDROME
     Dosage: 50-100MG, QHS, ORAL
     Route: 048
     Dates: start: 20050201

REACTIONS (4)
  - BLOOD GLUCOSE INCREASED [None]
  - DIARRHOEA [None]
  - DISEASE PROGRESSION [None]
  - PAIN [None]
